FAERS Safety Report 6187576-1 (Version None)
Quarter: 2009Q2

REPORT INFORMATION
  Report Type: 
  Country: None (occurrence: None)
  Receive Date: 20090508
  Receipt Date: 20090422
  Transmission Date: 20091009
  Serious: Yes (Hospitalization)
  Sender: FDA-Public Use
  Company Number: DSA_33592_2009

PATIENT
  Sex: Female

DRUGS (23)
  1. DILTIAZEM HCL [Suspect]
     Indication: DRUG USE FOR UNKNOWN INDICATION
     Dosage: (180 MG QD ORAL)
     Route: 048
     Dates: end: 20081109
  2. PYOSTACINE (PYOSTACINE) 500 MG (NOT SPECIFIED) [Suspect]
     Indication: ABSCESS
     Dosage: (3000 MG QD ORAL)
     Route: 048
     Dates: start: 20081018, end: 20081028
  3. DI-ANTALVIC /00016701/ (DI-ANTALVIC) (NOT SPECIFIED) [Suspect]
     Indication: PAIN
     Dosage: (6 DF QD ORAL)
     Route: 048
     Dates: start: 20081023, end: 20081029
  4. VANCOMYCIN [Suspect]
     Indication: ABSCESS
     Dosage: (DF INTRAVENOUS))
     Route: 042
     Dates: start: 20081028, end: 20081106
  5. FORTUM /00559702/ (FORTUM) 1 G (NOT SPECIFIED) [Suspect]
     Indication: ABSCESS
     Dosage: (1 G TID INTRAVENOUS))
     Route: 042
     Dates: start: 20081028, end: 20081110
  6. INIPOMP /01263201/ (INIPOMP) 20 MG (NOT SPECIFIED) [Suspect]
     Indication: DRUG USE FOR UNKNOWN INDICATION
     Dosage: (20 MG QD ORAL)
     Route: 048
     Dates: start: 20081101, end: 20081107
  7. PENICILLIN G [Suspect]
     Indication: ABSCESS
     Dosage: (40 MILLION IU QD INTRAVENOUS))
     Route: 042
     Dates: start: 20081018, end: 20081028
  8. AMIKACIN [Suspect]
     Indication: ABSCESS
     Dosage: (1.5 G QD INTRAVENOUS))
     Route: 042
     Dates: start: 20081028, end: 20081030
  9. ATARAX [Suspect]
     Indication: ANXIETY
     Dosage: (25 MG QD ORAL)
     Route: 048
     Dates: end: 20081112
  10. LANTUS [Concomitant]
  11. LEVOTHYROX [Concomitant]
  12. COAPROVEL [Concomitant]
  13. PREVISCAN /00789001/ [Concomitant]
  14. HUMALOG [Concomitant]
  15. STILNOX /00914901/ [Concomitant]
  16. HEMIGOXINE [Concomitant]
  17. LOVENOX [Concomitant]
  18. ISOPTIN [Concomitant]
  19. ZYRTEC [Concomitant]
  20. ACTISKENAN [Concomitant]
  21. ACUPAN [Concomitant]
  22. DOLIPRANE [Concomitant]
  23. ACETAMINOPHEN [Concomitant]

REACTIONS (6)
  - ABSCESS LIMB [None]
  - ACUTE GENERALISED EXANTHEMATOUS PUSTULOSIS [None]
  - LEUKOCYTOSIS [None]
  - OPEN WOUND [None]
  - PYREXIA [None]
  - SCAR [None]
